FAERS Safety Report 8746179 (Version 3)
Quarter: 2013Q2

REPORT INFORMATION
  Report Type: Report from Study
  Country: US (occurrence: US)
  Receive Date: 20120827
  Receipt Date: 20130517
  Transmission Date: 20140414
  Serious: No
  Sender: FDA-Public Use
  Company Number: PHEH2012US016616

PATIENT
  Age: 83 Year
  Sex: Female
  Weight: 159 kg

DRUGS (13)
  1. TASIGNA [Suspect]
     Indication: CHRONIC MYELOID LEUKAEMIA
     Dosage: 300 MG, BID
     Route: 048
     Dates: start: 201208
  2. IMODIUM A-D [Concomitant]
     Dosage: 2 MG
  3. METHOTREXATE [Concomitant]
     Dosage: 2.5 MG
  4. NABUMETONE [Concomitant]
     Dosage: 500 MG
  5. FOSINOPRIL [Concomitant]
     Dosage: 20 MG
  6. FENOFIBRATE [Concomitant]
     Dosage: 134 MG
  7. GLIPIZIDE [Concomitant]
     Dosage: 10 MG
  8. DILTIAZEM [Concomitant]
     Dosage: 120 MG
  9. ARIMIDEX [Concomitant]
     Dosage: 1 MG
  10. FISH OIL [Concomitant]
  11. PEPCID AC [Concomitant]
     Dosage: 10 MG
  12. MULTIVITAMINS [Concomitant]
  13. BABY ASPIRIN [Concomitant]
     Dosage: 81 MG

REACTIONS (10)
  - Herpes zoster [Unknown]
  - Nausea [Unknown]
  - Blood glucose increased [Unknown]
  - Diarrhoea [Unknown]
  - Dyspepsia [Unknown]
  - Vomiting [Unknown]
  - Alopecia [Unknown]
  - Abdominal discomfort [Unknown]
  - Decreased appetite [Unknown]
  - Weight decreased [Unknown]
